FAERS Safety Report 9627994 (Version 2)
Quarter: 2013Q4

REPORT INFORMATION
  Report Type: Spontaneous
  Country: GB (occurrence: GB)
  Receive Date: 20131016
  Receipt Date: 20131028
  Transmission Date: 20140711
  Serious: Yes (Hospitalization, Other)
  Sender: FDA-Public Use
  Company Number: GB-ACTAVIS-2013-18764

PATIENT
  Age: 61 Year
  Sex: Male
  Weight: 91 kg

DRUGS (7)
  1. GEMCITABINE (UNKNOWN) [Suspect]
     Indication: PANCREATIC CARCINOMA
     Dosage: 2128 MG, UNK
     Route: 042
     Dates: start: 20130830, end: 20130906
  2. ALLOPURINOL [Concomitant]
     Indication: GOUT
     Dosage: UNKNOWN
     Route: 065
  3. CREON [Concomitant]
     Indication: PANCREATIC INSUFFICIENCY
     Dosage: UNKNOWN
     Route: 065
  4. AMITRIPTYLINE [Concomitant]
     Indication: NEURALGIA
     Dosage: UNKNOWN
     Route: 065
  5. LANSOPRAZOLE [Concomitant]
     Indication: DYSPEPSIA
     Dosage: UNKNOWN
     Route: 065
  6. INDOMETHACIN                       /00003801/ [Concomitant]
     Indication: PAIN
     Dosage: UNKNOWN
     Route: 065
  7. PARACETAMOL [Concomitant]
     Indication: PAIN
     Dosage: UNKNOWN
     Route: 065

REACTIONS (4)
  - Liver function test abnormal [Recovering/Resolving]
  - Blood bilirubin increased [Unknown]
  - Biliary dilatation [Unknown]
  - Malaise [Recovered/Resolved]
